FAERS Safety Report 9984626 (Version 1)
Quarter: 2014Q1

REPORT INFORMATION
  Report Type: Spontaneous
  Country: US (occurrence: US)
  Receive Date: 20140307
  Receipt Date: 20140307
  Transmission Date: 20141002
  Serious: No
  Sender: FDA-Public Use
  Company Number: US-GLAXOSMITHKLINE-A1052282A

PATIENT
  Sex: Female

DRUGS (2)
  1. BREO ELLIPTA [Suspect]
     Indication: CHRONIC OBSTRUCTIVE PULMONARY DISEASE
     Dosage: 1PUFF SINGLE DOSE
     Route: 055
     Dates: start: 2013, end: 2013
  2. NO CONCURRENT MEDICATION [Concomitant]

REACTIONS (3)
  - Thirst [Recovered/Resolved]
  - Dry throat [Unknown]
  - Throat tightness [Unknown]
